FAERS Safety Report 7789424-2 (Version None)
Quarter: 2011Q3

REPORT INFORMATION
  Report Type: 
  Country: None (occurrence: None)
  Receive Date: 20110930
  Receipt Date: 20110919
  Transmission Date: 20111222
  Serious: Yes (Other)
  Sender: FDA-Public Use
  Company Number: AU-CELGENEUS-008-21880-11081935

PATIENT
  Sex: Male

DRUGS (4)
  1. DEXAMETHASONE [Suspect]
     Indication: MULTIPLE MYELOMA
     Route: 065
     Dates: start: 20110302, end: 20110625
  2. REVLIMID [Suspect]
     Indication: MULTIPLE MYELOMA
     Route: 048
     Dates: start: 20110302, end: 20110625
  3. ASPIRIN [Concomitant]
     Dosage: .4286 TABLET
     Dates: start: 20110329, end: 20110630
  4. BACTRIM DS [Concomitant]
     Dosage: .4286 TABLET
     Dates: start: 20110303, end: 20110701

REACTIONS (1)
  - GASTROINTESTINAL STROMAL TUMOUR [None]
